FAERS Safety Report 7092753-1 (Version None)
Quarter: 2010Q4

REPORT INFORMATION
  Report Type: 
  Country: None (occurrence: None)
  Receive Date: 20101110
  Receipt Date: 20101030
  Transmission Date: 20110411
  Serious: Yes (Hospitalization, Other)
  Sender: FDA-Public Use
  Company Number: US-CELGENEUS-163-21880-10110160

PATIENT
  Age: 81 Year
  Sex: Female
  Weight: 62.4 kg

DRUGS (4)
  1. REVLIMID [Suspect]
     Indication: MYELODYSPLASTIC SYNDROME
     Route: 048
     Dates: start: 20091103
  2. REVLIMID [Suspect]
     Route: 048
     Dates: start: 20100526
  3. ERYTHROPOIETIN HUMAN [Suspect]
     Dosage: 4000 UNITS
     Route: 065
     Dates: end: 20100526
  4. HYDREA [Concomitant]
     Route: 065

REACTIONS (6)
  - ACUTE MYELOID LEUKAEMIA [None]
  - CELLULITIS [None]
  - MYELODYSPLASTIC SYNDROME TRANSFORMATION [None]
  - RENAL FAILURE ACUTE [None]
  - TUMOUR LYSIS SYNDROME [None]
  - URINARY TRACT INFECTION [None]
